FAERS Safety Report 25941901 (Version 1)
Quarter: 2025Q4

REPORT INFORMATION
  Report Type: Spontaneous
  Country: US (occurrence: None)
  Receive Date: 20251020
  Receipt Date: 20251020
  Transmission Date: 20260118
  Serious: Yes (Hospitalization)
  Sender: FDA-CTU
  Company Number: None

PATIENT
  Sex: Male

DRUGS (1)
  1. PIRFENIDONE [Suspect]
     Active Substance: PIRFENIDONE
     Indication: Interstitial lung disease
     Dosage: 267 MG 3 TIMES A DAY ORAL
     Route: 048

REACTIONS (4)
  - Decreased appetite [None]
  - Respiratory tract infection viral [None]
  - Therapy interrupted [None]
  - Nausea [None]
